FAERS Safety Report 7476736-5 (Version None)
Quarter: 2011Q2

REPORT INFORMATION
  Report Type: 
  Country: None (occurrence: None)
  Receive Date: 20110512
  Receipt Date: 20110502
  Transmission Date: 20111010
  Serious: Yes (Other)
  Sender: FDA-Public Use
  Company Number: US-BAXTER-2011BH010535

PATIENT
  Age: 16 Year
  Sex: Male

DRUGS (4)
  1. RECOMBINATE [Suspect]
     Indication: FACTOR VIII DEFICIENCY
     Route: 042
     Dates: end: 20000101
  2. ALPHANATE [Suspect]
     Indication: PRODUCT USED FOR UNKNOWN INDICATION
     Route: 065
  3. RECOMBINATE [Suspect]
     Route: 042
  4. NOVOSEVEN [Suspect]
     Indication: PRODUCT USED FOR UNKNOWN INDICATION
     Route: 065

REACTIONS (2)
  - FACTOR VIII INHIBITION [None]
  - THROMBOSIS [None]
